FAERS Safety Report 7984262-X (Version None)
Quarter: 2011Q4

REPORT INFORMATION
  Report Type: 
  Country: None (occurrence: None)
  Receive Date: 20111214
  Receipt Date: 20111130
  Transmission Date: 20120403
  Serious: Yes (Death)
  Sender: FDA-Public Use
  Company Number: 1000026139

PATIENT
  Sex: Male

DRUGS (1)
  1. CITALOPRAM HYDROBROMIDE [Suspect]
     Dosage: OVERDOSE: AMOUNT UNKNOWN, ORAL
     Route: 048

REACTIONS (2)
  - COMPLETED SUICIDE [None]
  - ASPHYXIA [None]
